FAERS Safety Report 5155841-2 (Version None)
Quarter: 2006Q4

REPORT INFORMATION
  Report Type: 
  Country: None (occurrence: None)
  Receive Date: 20061120
  Receipt Date: 20061120
  Transmission Date: 20070319
  Serious: Yes (Hospitalization, Other)
  Sender: FDA-Public Use
  Company Number: None

PATIENT
  Age: 79 Year
  Sex: Female

DRUGS (8)
  1. CIPROFLOXACIN [Suspect]
     Indication: DISEASE RECURRENCE
     Dosage: 400MG  Q12   IV
     Route: 042
     Dates: start: 20050606, end: 20050607
  2. CIPROFLOXACIN [Suspect]
     Indication: PANCREATITIS
     Dosage: 400MG  Q12   IV
     Route: 042
     Dates: start: 20050606, end: 20050607
  3. ENALAPRIL MALEATE [Concomitant]
  4. METOPROLOL SUCCINATE [Concomitant]
  5. LASIX [Concomitant]
  6. ZANTAC [Concomitant]
  7. ASPIRIN [Concomitant]
  8. LASIX [Concomitant]

REACTIONS (1)
  - DERMATITIS EXFOLIATIVE [None]
